FAERS Safety Report 25526865 (Version 3)
Quarter: 2025Q3

REPORT INFORMATION
  Report Type: Spontaneous
  Country: JP (occurrence: JP)
  Receive Date: 20250707
  Receipt Date: 20250910
  Transmission Date: 20251021
  Serious: Yes (Other)
  Sender: NOVARTIS
  Company Number: JP-002147023-NVSJ2025JP003612

PATIENT

DRUGS (4)
  1. LUTATHERA [Suspect]
     Active Substance: LUTETIUM OXODOTREOTIDE LU-177
     Indication: Pancreatic neuroendocrine tumour
     Route: 041
     Dates: start: 20241212
  2. LUTATHERA [Suspect]
     Active Substance: LUTETIUM OXODOTREOTIDE LU-177
     Route: 041
     Dates: start: 20250220, end: 20250220
  3. ARGININE\LYSINE [Suspect]
     Active Substance: ARGININE\LYSINE
     Indication: Product used for unknown indication
     Route: 041
     Dates: start: 20241212
  4. ARGININE\LYSINE [Suspect]
     Active Substance: ARGININE\LYSINE
     Route: 041
     Dates: start: 20250220, end: 20250220

REACTIONS (3)
  - Gallbladder cancer [Unknown]
  - Second primary malignancy [Unknown]
  - Inappropriate schedule of product administration [Unknown]
